FAERS Safety Report 9849863 (Version 2)
Quarter: 2014Q1

REPORT INFORMATION
  Report Type: Spontaneous
  Country: FR (occurrence: FR)
  Receive Date: 20140128
  Receipt Date: 20140131
  Transmission Date: 20141002
  Serious: Yes (Death, Other)
  Sender: FDA-Public Use
  Company Number: FR-JNJFOC-20140115079

PATIENT
  Age: 71 Year
  Sex: Male
  Weight: 73.02 kg

DRUGS (13)
  1. XARELTO [Suspect]
     Indication: PRODUCT USED FOR UNKNOWN INDICATION
     Route: 048
  2. ASPEGIC [Concomitant]
     Route: 065
  3. AMLOR [Concomitant]
     Route: 065
  4. CARDENSIEL [Concomitant]
     Route: 065
  5. EPINITRIL [Concomitant]
     Route: 065
  6. PREVISCAN (FLUINDIONE) [Concomitant]
     Route: 065
  7. LASILIX [Concomitant]
     Route: 065
  8. ATACAND [Concomitant]
     Route: 065
  9. TAHOR [Concomitant]
     Route: 065
  10. METFORMINE [Concomitant]
     Route: 065
  11. ADANCOR [Concomitant]
     Route: 065
  12. LYRICA [Concomitant]
     Route: 065
  13. INEXIUM [Concomitant]
     Route: 065

REACTIONS (1)
  - Sudden death [Fatal]
